FAERS Safety Report 5664101-2 (Version None)
Quarter: 2008Q1

REPORT INFORMATION
  Report Type: 
  Country: None (occurrence: None)
  Receive Date: 20080314
  Receipt Date: 20080303
  Transmission Date: 20080703
  Serious: Yes (Other)
  Sender: FDA-Public Use
  Company Number: US-JNJFOC-20080301135

PATIENT
  Sex: Female
  Weight: 79.38 kg

DRUGS (10)
  1. DURAGESIC-100 [Suspect]
     Route: 062
  2. DURAGESIC-100 [Suspect]
     Indication: PAIN
     Route: 062
  3. ESTROGEN [Concomitant]
     Indication: DRUG USE FOR UNKNOWN INDICATION
     Route: 062
  4. SYNTHROID [Concomitant]
     Indication: THYROID DISORDER
     Route: 048
  5. TOPROL [Concomitant]
     Indication: BLOOD PRESSURE
     Route: 048
  6. PREVACID [Concomitant]
     Indication: GASTROOESOPHAGEAL REFLUX DISEASE
     Route: 048
  7. VALIUM [Concomitant]
     Indication: SURGERY
     Route: 048
  8. VALIUM [Concomitant]
     Indication: MUSCLE RELAXANT THERAPY
     Route: 048
  9. PERCOCET [Concomitant]
     Indication: BACK PAIN
     Dosage: UP TO 5 A DAY
     Route: 048
  10. ESTRADERM [Concomitant]
     Indication: HORMONE REPLACEMENT THERAPY
     Route: 062

REACTIONS (5)
  - DEAFNESS BILATERAL [None]
  - EAR DISCOMFORT [None]
  - HYPOACUSIS [None]
  - TINNITUS [None]
  - WRONG TECHNIQUE IN DRUG USAGE PROCESS [None]
